FAERS Safety Report 12650839 (Version 1)
Quarter: 2016Q3

REPORT INFORMATION
  Report Type: Spontaneous
  Country: US (occurrence: US)
  Receive Date: 20160815
  Receipt Date: 20160815
  Transmission Date: 20161109
  Serious: No
  Sender: FDA-Public Use
  Company Number: US-JAZZ-2016-US-005410

PATIENT
  Sex: Male
  Weight: 113.38 kg

DRUGS (38)
  1. XYREM [Suspect]
     Active Substance: SODIUM OXYBATE
     Indication: NARCOLEPSY
     Dosage: 4.5 G, BID
     Route: 048
     Dates: start: 200512, end: 2008
  2. XYREM [Suspect]
     Active Substance: SODIUM OXYBATE
     Indication: SOMNOLENCE
     Dosage: 2.25 G, BID
     Route: 048
     Dates: start: 201209, end: 2012
  3. XYREM [Suspect]
     Active Substance: SODIUM OXYBATE
     Dosage: 3.75 G, BID
     Route: 048
     Dates: start: 20160317
  4. RAMIPRIL. [Concomitant]
     Active Substance: RAMIPRIL
  5. ANDROGEL [Concomitant]
     Active Substance: TESTOSTERONE
  6. PAMELOR [Concomitant]
     Active Substance: NORTRIPTYLINE HYDROCHLORIDE
  7. BUTRANS [Concomitant]
     Active Substance: BUPRENORPHINE
  8. PRIMIDONE. [Concomitant]
     Active Substance: PRIMIDONE
  9. CYMBALTA [Concomitant]
     Active Substance: DULOXETINE HYDROCHLORIDE
  10. XYREM [Suspect]
     Active Substance: SODIUM OXYBATE
     Dosage: 4.5 G, BID
     Route: 048
     Dates: start: 201212, end: 2013
  11. DULOXETINE HCL [Concomitant]
     Active Substance: DULOXETINE HYDROCHLORIDE
  12. OXYCODONE HYDROCHLORIDE. [Concomitant]
     Active Substance: OXYCODONE HYDROCHLORIDE
  13. FLOMAX [Concomitant]
     Active Substance: TAMSULOSIN HYDROCHLORIDE
  14. KLONOPIN [Concomitant]
     Active Substance: CLONAZEPAM
  15. BELSOMRA [Concomitant]
     Active Substance: SUVOREXANT
  16. SYMBICORT [Concomitant]
     Active Substance: BUDESONIDE\FORMOTEROL FUMARATE DIHYDRATE
  17. NASONEX [Concomitant]
     Active Substance: MOMETASONE FUROATE
  18. TOPAMAX [Concomitant]
     Active Substance: TOPIRAMATE
  19. VITAMIN C [Concomitant]
     Active Substance: ASCORBIC ACID
  20. AFLURIA [Concomitant]
     Active Substance: INFLUENZA VIRUS VACCINE TRIVALENT TYPE A+B AFLURIA
  21. ANUSOL HC [Concomitant]
     Active Substance: HYDROCORTISONE
  22. TRIMIX [Concomitant]
     Active Substance: ALPROSTADIL\PAPAVERINE\PHENTOLAMINE
  23. LAMICTAL [Concomitant]
     Active Substance: LAMOTRIGINE
  24. METHYLPHENIDATE. [Concomitant]
     Active Substance: METHYLPHENIDATE
  25. CICLOPIROX. [Concomitant]
     Active Substance: CICLOPIROX
  26. ABILIFY [Concomitant]
     Active Substance: ARIPIPRAZOLE
  27. MUPIROCIN. [Concomitant]
     Active Substance: MUPIROCIN
  28. ANTIVERT [Concomitant]
     Active Substance: MECLIZINE HYDROCHLORIDE
  29. NABUMETONE. [Concomitant]
     Active Substance: NABUMETONE
  30. MULTIVITAMINS [Concomitant]
     Active Substance: VITAMINS
  31. LYRICA [Concomitant]
     Active Substance: PREGABALIN
  32. LITHIUM. [Concomitant]
     Active Substance: LITHIUM
  33. VITAMIN D [Concomitant]
     Active Substance: CHOLECALCIFEROL
  34. NUVIGIL [Concomitant]
     Active Substance: ARMODAFINIL
  35. PROPANTHELINE [Concomitant]
     Active Substance: PROPANTHELINE
  36. PROAIR HFA [Concomitant]
     Active Substance: ALBUTEROL SULFATE
  37. CADUET [Concomitant]
     Active Substance: AMLODIPINE BESYLATE\ATORVASTATIN CALCIUM
  38. LUNESTA [Concomitant]
     Active Substance: ESZOPICLONE

REACTIONS (5)
  - Memory impairment [Unknown]
  - Feeling cold [Unknown]
  - Coordination abnormal [Not Recovered/Not Resolved]
  - Loss of consciousness [Unknown]
  - Hallucination [Unknown]
